FAERS Safety Report 4492056-5 (Version None)
Quarter: 2004Q4

REPORT INFORMATION
  Report Type: 
  Country: None (occurrence: None)
  Receive Date: 20041101
  Receipt Date: 20041020
  Transmission Date: 20050328
  Serious: Yes (Hospitalization)
  Sender: FDA-Public Use
  Company Number: FRWYE127320OCT04

PATIENT
  Age: 43 Year
  Sex: Male

DRUGS (1)
  1. MINOCIN [Suspect]
     Dosage: ORAL
     Route: 048
     Dates: start: 20040624, end: 20040726

REACTIONS (5)
  - HEADACHE [None]
  - HEPATITIS [None]
  - LEUKOCYTOSIS [None]
  - PALPITATIONS [None]
  - PARAESTHESIA [None]
